FAERS Safety Report 10597754 (Version 1)
Quarter: 2014Q4

REPORT INFORMATION
  Report Type: Spontaneous
  Country: US (occurrence: None)
  Receive Date: 20141120
  Receipt Date: 20141120
  Transmission Date: 20150529
  Serious: Yes (Other)
  Sender: FDA-Public Use
  Company Number: None

PATIENT
  Age: 23 Year
  Sex: Female
  Weight: 47.63 kg

DRUGS (3)
  1. IVIG [Concomitant]
     Active Substance: HUMAN IMMUNOGLOBULIN G
  2. COLGATE OPTIC WHITE SEAL MOUTHWASH [Suspect]
     Active Substance: HYDROGEN PEROXIDE
  3. COLGATE OPTIC WHITE - SPARKLING MINT [Suspect]
     Active Substance: SODIUM MONOFLUOROPHOSPHATE
     Indication: DENTAL CARE
     Dosage: 473 ML, 15 ML, 2 DAILY, BY MOUTH
     Route: 048
     Dates: start: 20141102, end: 20141112

REACTIONS (1)
  - Aphthous stomatitis [None]

NARRATIVE: CASE EVENT DATE: 20141102
